FAERS Safety Report 18941953 (Version 5)
Quarter: 2021Q3

REPORT INFORMATION
  Report Type: Report from Study
  Country: US (occurrence: US)
  Receive Date: 20210225
  Receipt Date: 20210716
  Transmission Date: 20211014
  Serious: Yes (Hospitalization, Other)
  Sender: FDA-Public Use
  Company Number: US-TAKEDA-2020TUS049856

PATIENT
  Sex: Male
  Weight: 57.14 kg

DRUGS (9)
  1. TEDUGLUTIDE [Suspect]
     Active Substance: TEDUGLUTIDE
     Dosage: 2.95 MILLIGRAM, QOD
     Route: 058
     Dates: start: 20201024
  2. TEDUGLUTIDE [Suspect]
     Active Substance: TEDUGLUTIDE
     Indication: SHORT-BOWEL SYNDROME
     Dosage: 2.95 MILLIGRAM, EVERY OTHER DAY
     Route: 058
     Dates: start: 20201004
  3. TEDUGLUTIDE [Suspect]
     Active Substance: TEDUGLUTIDE
     Indication: SHORT-BOWEL SYNDROME
     Dosage: 2.95 MILLIGRAM, EVERY OTHER DAY
     Route: 058
     Dates: start: 20201004
  4. TEDUGLUTIDE [Suspect]
     Active Substance: TEDUGLUTIDE
     Dosage: 2.95 MILLIGRAM, QOD
     Route: 058
     Dates: start: 20201024
  5. TEDUGLUTIDE [Suspect]
     Active Substance: TEDUGLUTIDE
     Indication: SHORT-BOWEL SYNDROME
     Dosage: 2.95 MILLIGRAM, EVERY OTHER DAY
     Route: 058
     Dates: start: 20201004
  6. TEDUGLUTIDE [Suspect]
     Active Substance: TEDUGLUTIDE
     Dosage: 2.95 MILLIGRAM, QOD
     Route: 058
     Dates: start: 20201024
  7. TEDUGLUTIDE [Suspect]
     Active Substance: TEDUGLUTIDE
     Indication: SHORT-BOWEL SYNDROME
     Dosage: 2.95 MILLIGRAM, EVERY OTHER DAY
     Route: 058
     Dates: start: 20201004
  8. TEDUGLUTIDE [Suspect]
     Active Substance: TEDUGLUTIDE
     Dosage: 2.95 MILLIGRAM, QOD
     Route: 058
     Dates: start: 20201024
  9. TPN [Concomitant]
     Active Substance: AMINO ACIDS\DEXTROSE\ELECTROLYTES NOS\SOYBEAN OIL
     Dosage: UNK
     Dates: start: 20210609

REACTIONS (17)
  - Sepsis [Unknown]
  - Dyspnoea [Unknown]
  - Blood iron decreased [Unknown]
  - Vascular device infection [Unknown]
  - Panic attack [Unknown]
  - Diarrhoea [Unknown]
  - Abdominal pain [Unknown]
  - Limb operation [Unknown]
  - Crohn^s disease [Unknown]
  - Chest pain [Unknown]
  - Headache [Unknown]
  - Obstruction [Unknown]
  - Dehydration [Unknown]
  - Fatigue [Unknown]
  - Chromaturia [Unknown]
  - Product dose omission issue [Unknown]
  - Arthralgia [Unknown]
